FAERS Safety Report 13660756 (Version 1)
Quarter: 2017Q2

REPORT INFORMATION
  Report Type: Spontaneous
  Country: US (occurrence: US)
  Receive Date: 20170616
  Receipt Date: 20170616
  Transmission Date: 20170830
  Serious: No
  Sender: FDA-Public Use
  Company Number: US-TARO-2016TAR00664

PATIENT
  Age: 59 Year
  Sex: Female

DRUGS (1)
  1. NORTRIPTYLINE HCL CAPSULES 25 MG [Suspect]
     Active Substance: NORTRIPTYLINE HYDROCHLORIDE
     Indication: PAIN
     Dosage: UNK
     Route: 048
     Dates: start: 20160718

REACTIONS (4)
  - Arthralgia [Unknown]
  - Off label use [Unknown]
  - Product substitution issue [None]
  - Product substitution issue [Unknown]

NARRATIVE: CASE EVENT DATE: 201607
